FAERS Safety Report 6174015-X (Version None)
Quarter: 2009Q2

REPORT INFORMATION
  Report Type: 
  Country: None (occurrence: None)
  Receive Date: 20090430
  Receipt Date: 20071204
  Transmission Date: 20091009
  Serious: No
  Sender: FDA-Public Use
  Company Number: US-ASTRAZENECA-2007UW27563

PATIENT
  Age: 41 Year
  Sex: Female
  Weight: 64.4 kg

DRUGS (5)
  1. NEXIUM [Suspect]
     Indication: GASTROOESOPHAGEAL REFLUX DISEASE
     Route: 048
     Dates: start: 20020101
  2. DIABETES MEDICATION [Concomitant]
     Indication: DIABETES MELLITUS
  3. BLOOD PRESSURE PILL [Concomitant]
     Indication: HYPERTENSION
  4. INHALER [Concomitant]
  5. GAVISCON [Concomitant]

REACTIONS (1)
  - COLITIS [None]
